FAERS Safety Report 7716660-3 (Version None)
Quarter: 2011Q3

REPORT INFORMATION
  Report Type: 
  Country: None (occurrence: None)
  Receive Date: 20110829
  Receipt Date: 20110211
  Transmission Date: 20111222
  Serious: No
  Sender: FDA-Public Use
  Company Number: US-ASTRAZENECA-2011SE08390

PATIENT
  Age: 20 Year
  Sex: Male

DRUGS (9)
  1. MULTI-VITAMIN [Concomitant]
     Dosage: DAILY
  2. SEPTRA DS [Concomitant]
     Dosage: BID
  3. ALBUTERAL NEB [Concomitant]
     Dosage: BID
  4. SINGULAIR [Concomitant]
  5. CELEXA [Concomitant]
  6. TRAZODONE HCL [Concomitant]
  7. IRESSA [Suspect]
     Indication: LARYNGEAL PAPILLOMA
     Route: 048
     Dates: start: 20030101
  8. ATROVENT [Concomitant]
     Dosage: BID
  9. OMEGA FISH OILS [Concomitant]

REACTIONS (2)
  - OCCULT BLOOD POSITIVE [None]
  - IRON DEFICIENCY [None]
